FAERS Safety Report 9359255 (Version 1)
Quarter: 2013Q2

REPORT INFORMATION
  Report Type: Spontaneous
  Country: US (occurrence: US)
  Receive Date: 20130620
  Receipt Date: 20130620
  Transmission Date: 20140414
  Serious: No
  Sender: FDA-Public Use
  Company Number: US-PFIZER INC-2013185465

PATIENT
  Age: 46 Year
  Sex: Female
  Weight: 81.63 kg

DRUGS (5)
  1. LYRICA [Suspect]
     Indication: FIBROMYALGIA
     Dosage: 150 MG, 2X/DAY
  2. LYRICA [Suspect]
     Indication: RHEUMATOID ARTHRITIS
  3. CLOBETASOL PROPIONATE [Suspect]
     Indication: BLISTER
     Dosage: UNK
     Dates: start: 2010
  4. BENADRYL [Concomitant]
     Indication: HYPERSENSITIVITY
     Dosage: UNK
  5. LORATADINE [Concomitant]
     Indication: HYPERSENSITIVITY
     Dosage: UNK

REACTIONS (3)
  - Off label use [Unknown]
  - Blister [Unknown]
  - Drug ineffective [Unknown]
